FAERS Safety Report 21667847 (Version 2)
Quarter: 2022Q4

REPORT INFORMATION
  Report Type: Spontaneous
  Country: US (occurrence: US)
  Receive Date: 20221201
  Receipt Date: 20221212
  Transmission Date: 20230113
  Serious: No
  Sender: FDA-Public Use
  Company Number: US-Calliditas-2022CAL00534

PATIENT
  Age: 48 Year
  Sex: Female

DRUGS (9)
  1. TARPEYO [Suspect]
     Active Substance: BUDESONIDE
     Indication: Haematuria
     Dosage: 16 MG (4 MG CAPSULES) ONCE DAILY
     Route: 048
     Dates: start: 20221024
  2. MYRBETRIQ [Concomitant]
     Active Substance: MIRABEGRON
  3. LOSARTAN [Concomitant]
     Active Substance: LOSARTAN
  4. ROSUVASTATIN [Concomitant]
     Active Substance: ROSUVASTATIN
  5. SPIRONOLACTONE [Concomitant]
     Active Substance: SPIRONOLACTONE
  6. CETIRIZINE [Concomitant]
     Active Substance: CETIRIZINE HYDROCHLORIDE
  7. VITAMIN B COMPLEX [Concomitant]
     Active Substance: CYANOCOBALAMIN\DEXPANTHENOL\NIACINAMIDE\PYRIDOXINE HYDROCHLORIDE\RIBOFLAVIN 5^-PHOSPHATE SODIUM\THIA
  8. FERROUS SULFATE [Concomitant]
     Active Substance: FERROUS SULFATE
  9. WEGOVY [Concomitant]
     Active Substance: SEMAGLUTIDE

REACTIONS (4)
  - Thirst [Not Recovered/Not Resolved]
  - Pollakiuria [Not Recovered/Not Resolved]
  - Product dose omission issue [Recovered/Resolved]
  - Dry mouth [Not Recovered/Not Resolved]

NARRATIVE: CASE EVENT DATE: 20221025
